FAERS Safety Report 5418441-2 (Version None)
Quarter: 2007Q3

REPORT INFORMATION
  Report Type: 
  Country: None (occurrence: None)
  Receive Date: 20070817
  Receipt Date: 20070808
  Transmission Date: 20080115
  Serious: Yes (Hospitalization)
  Sender: FDA-Public Use
  Company Number: FR-AMGEN-US239032

PATIENT
  Sex: Male

DRUGS (9)
  1. ENBREL [Suspect]
     Indication: DRUG USE FOR UNKNOWN INDICATION
     Route: 058
     Dates: start: 20070401, end: 20070515
  2. CORTANCYL [Suspect]
     Route: 048
  3. OMEPRAZOLE [Concomitant]
     Dosage: UNKNOWN
  4. CALCIUM CARBONATE [Concomitant]
     Dosage: UNKNOWN
  5. OMIX [Concomitant]
     Dosage: UNKNOWN
  6. ELISOR [Concomitant]
     Dosage: UNKNOWN
  7. BISOPROLOL [Concomitant]
     Dosage: UNKNOWN
  8. ALLOPURINOL [Concomitant]
     Dosage: UNKNOWN
  9. COLECALCIFEROL [Concomitant]
     Dosage: UNKNOWN

REACTIONS (9)
  - BRADYCARDIA [None]
  - DEEP VEIN THROMBOSIS [None]
  - DISSEMINATED INTRAVASCULAR COAGULATION [None]
  - HERPES ZOSTER [None]
  - LOSS OF CONSCIOUSNESS [None]
  - PNEUMONIA ESCHERICHIA [None]
  - SEPTIC SHOCK [None]
  - SKIN ULCER [None]
  - THROMBOSIS [None]
